FAERS Safety Report 6522450-X (Version None)
Quarter: 2009Q4

REPORT INFORMATION
  Report Type: 
  Country: None (occurrence: None)
  Receive Date: 20091229
  Receipt Date: 20091229
  Transmission Date: 20100525
  Serious: No
  Sender: FDA-Public Use
  Company Number: None

PATIENT
  Age: 28 Year
  Sex: Male
  Weight: 78.9259 kg

DRUGS (6)
  1. SEROQUEL XR [Suspect]
     Indication: BIPOLAR DISORDER
     Dosage: 1 TABLET PO=TID. 3 TIMES A DAY PO
     Route: 048
     Dates: start: 20060626, end: 20060629
  2. SEROQUEL XR [Suspect]
     Indication: MANIA
     Dosage: 1 TABLET PO=TID. 3 TIMES A DAY PO
     Route: 048
     Dates: start: 20060626, end: 20060629
  3. SEROQUEL XR [Suspect]
     Indication: MOOD SWINGS
     Dosage: 1 TABLET PO=TID. 3 TIMES A DAY PO
     Route: 048
     Dates: start: 20060626, end: 20060629
  4. SEROQUEL XR [Suspect]
     Indication: ANXIETY
     Dosage: 1 TABLET PO=TID
     Route: 048
     Dates: start: 20060626, end: 20060629
  5. SEROQUEL XR [Suspect]
     Indication: DEPRESSION
     Dosage: 1 TABLET PO=TID
     Route: 048
     Dates: start: 20060626, end: 20060629
  6. SEROQUEL XR [Suspect]
     Indication: PANIC REACTION
     Dosage: 1 TABLET PO=TID
     Route: 048
     Dates: start: 20060626, end: 20060629

REACTIONS (4)
  - CONVULSION [None]
  - DYSKINESIA [None]
  - MUSCLE DISORDER [None]
  - TREMOR [None]
